FAERS Safety Report 4903973-3 (Version None)
Quarter: 2006Q1

REPORT INFORMATION
  Report Type: 
  Country: None (occurrence: None)
  Receive Date: 20060208
  Receipt Date: 20020904
  Transmission Date: 20060701
  Serious: No
  Sender: FDA-Public Use
  Company Number: US-GLAXOSMITHKLINE-A0380002A

PATIENT
  Age: 42 Year
  Sex: Female

DRUGS (3)
  1. PAXIL [Suspect]
     Indication: STRESS
     Route: 048
     Dates: start: 19990309
  2. VALIUM [Concomitant]
  3. TRAZODONE [Concomitant]

REACTIONS (18)
  - ANOREXIA [None]
  - BALANCE DISORDER [None]
  - BRUXISM [None]
  - CONFUSIONAL STATE [None]
  - DEPRESSION [None]
  - DISTURBANCE IN ATTENTION [None]
  - DIZZINESS [None]
  - DRUG WITHDRAWAL SYNDROME [None]
  - EYE PAIN [None]
  - FEAR [None]
  - HOT FLUSH [None]
  - HYPERHIDROSIS [None]
  - INSOMNIA [None]
  - MUSCLE SPASMS [None]
  - SENSORY DISTURBANCE [None]
  - SINUS HEADACHE [None]
  - VISION BLURRED [None]
  - WEIGHT DECREASED [None]
